FAERS Safety Report 4577919-4 (Version None)
Quarter: 2005Q1

REPORT INFORMATION
  Report Type: 
  Country: None (occurrence: None)
  Receive Date: 20050209
  Receipt Date: 20050126
  Transmission Date: 20050727
  Serious: Yes (Hospitalization)
  Sender: FDA-Public Use
  Company Number: 2004JP001330

PATIENT
  Age: 26 Year
  Sex: Male
  Weight: 30 kg

DRUGS (10)
  1. PROGRAF [Suspect]
     Indication: RENAL TRANSPLANT
     Dosage: SEE IMAGE
     Route: 042
     Dates: start: 20040629, end: 20040703
  2. PROGRAF [Suspect]
     Indication: RENAL TRANSPLANT
     Dosage: SEE IMAGE
     Route: 042
     Dates: start: 20040704, end: 20040711
  3. PROGRAF [Suspect]
     Indication: RENAL TRANSPLANT
     Dosage: SEE IMAGE
     Route: 042
     Dates: start: 20040712
  4. SOLU-MEDROL [Concomitant]
  5. SIMULECT [Concomitant]
  6. CELLCEPT [Concomitant]
  7. NEORAL [Concomitant]
  8. TAZOCIN (PIPERACILLIN SODIUM, TAZOBACTAM SODIUM) [Concomitant]
  9. CEFAZOLIN [Concomitant]
  10. PLETAL [Concomitant]

REACTIONS (5)
  - DYSKINESIA [None]
  - DYSTONIA [None]
  - MUSCLE SPASTICITY [None]
  - MUSCLE TWITCHING [None]
  - TREMOR [None]
